FAERS Safety Report 23398457 (Version 1)
Quarter: 2024Q1

REPORT INFORMATION
  Report Type: Spontaneous
  Country: US (occurrence: US)
  Receive Date: 20240112
  Receipt Date: 20240112
  Transmission Date: 20240410
  Serious: Yes (Other)
  Sender: FDA-Public Use
  Company Number: US-MYLANLABS-2024M1002280

PATIENT
  Sex: Female

DRUGS (5)
  1. SILDENAFIL [Suspect]
     Active Substance: SILDENAFIL
     Indication: Product used for unknown indication
     Dosage: UNK
     Route: 065
  2. TREPROSTINIL SODIUM [Suspect]
     Active Substance: TREPROSTINIL SODIUM
     Indication: Pulmonary arterial hypertension
     Dosage: 29 MICROLITER PER HOUR
     Route: 058
  3. TREPROSTINIL SODIUM [Suspect]
     Active Substance: TREPROSTINIL SODIUM
     Dosage: 0.031 MICROGRAM PER KILOGRAM (AT A RATE OF 28 UL/HR)
     Route: 058
     Dates: start: 2023
  4. TREPROSTINIL SODIUM [Suspect]
     Active Substance: TREPROSTINIL SODIUM
     Dosage: 30 MICROLITER PER HOUR
     Route: 058
     Dates: start: 2023, end: 2023
  5. TREPROSTINIL SODIUM [Suspect]
     Active Substance: TREPROSTINIL SODIUM
     Dosage: UNK
     Route: 058

REACTIONS (10)
  - Glaucoma [Unknown]
  - Arthralgia [Not Recovered/Not Resolved]
  - Infusion site haemorrhage [Unknown]
  - Infusion site erythema [Unknown]
  - Infusion site swelling [Unknown]
  - Pain in extremity [Recovering/Resolving]
  - Diarrhoea [Unknown]
  - Visual impairment [Unknown]
  - Hypoacusis [Unknown]
  - Headache [Unknown]
